FAERS Safety Report 12738062 (Version 1)
Quarter: 2016Q3

REPORT INFORMATION
  Report Type: Spontaneous
  Country: US (occurrence: US)
  Receive Date: 20160913
  Receipt Date: 20160913
  Transmission Date: 20161109
  Serious: Yes (Other)
  Sender: FDA-Public Use
  Company Number: US-GALDERMA-US16006108

PATIENT
  Sex: Female

DRUGS (1)
  1. CETAPHIL GENTLE CLEANSING ANTIBACTERIAL BAR [Suspect]
     Active Substance: TRICLOSAN
     Route: 061

REACTIONS (1)
  - Breast cancer [Unknown]
